FAERS Safety Report 4845075-0 (Version None)
Quarter: 2005Q4

REPORT INFORMATION
  Report Type: 
  Country: None (occurrence: None)
  Receive Date: 20051205
  Receipt Date: 20041202
  Transmission Date: 20060501
  Serious: Yes (Hospitalization, Disabling)
  Sender: FDA-Public Use
  Company Number: US-MERCK-0412USA03301

PATIENT
  Age: 68 Year
  Sex: Female
  Weight: 60 kg

DRUGS (11)
  1. LIPITOR [Concomitant]
     Indication: BLOOD CHOLESTEROL INCREASED
     Route: 065
     Dates: start: 19990802, end: 20041120
  2. NORVASC [Concomitant]
     Indication: HYPERTENSION
     Route: 065
     Dates: start: 19990601, end: 20030827
  3. EVISTA [Concomitant]
     Indication: OSTEOPOROSIS
     Route: 065
     Dates: start: 19990922, end: 20030909
  4. MIACALCIN [Concomitant]
     Indication: OSTEOPOROSIS
     Route: 065
     Dates: start: 19990714, end: 20030909
  5. ZITHROMAX [Concomitant]
     Route: 065
     Dates: start: 19990811, end: 20030314
  6. ARTHROTEC [Concomitant]
     Indication: ARTHRITIS
     Route: 065
     Dates: start: 19990613, end: 20000102
  7. METHOCARBAMOL [Concomitant]
     Indication: PAIN
     Route: 065
     Dates: start: 19990806, end: 19991006
  8. VIOXX [Suspect]
     Indication: OSTEOARTHRITIS
     Route: 048
     Dates: start: 19990922, end: 20030814
  9. VIOXX [Suspect]
     Indication: PAIN
     Route: 048
     Dates: start: 19990922, end: 20030814
  10. ELAVIL [Concomitant]
     Route: 065
  11. SYNTHROID [Concomitant]
     Indication: HYPOTHYROIDISM
     Route: 065
     Dates: start: 19990601, end: 20041222

REACTIONS (29)
  - ACUTE MYOCARDIAL INFARCTION [None]
  - ANAEMIA [None]
  - ARTERIOSCLEROSIS CORONARY ARTERY [None]
  - ATRIAL FIBRILLATION [None]
  - ATRIOVENTRICULAR BLOCK FIRST DEGREE [None]
  - BLOOD CREATINE PHOSPHOKINASE INCREASED [None]
  - CARDIAC FAILURE CONGESTIVE [None]
  - CARDIAC MURMUR [None]
  - CARDIOGENIC SHOCK [None]
  - CARDIOMYOPATHY [None]
  - COUGH [None]
  - DIARRHOEA [None]
  - DIVERTICULUM [None]
  - GASTRIC POLYPS [None]
  - HAEMATOCRIT DECREASED [None]
  - HAEMATURIA [None]
  - HAEMOGLOBIN DECREASED [None]
  - HAEMORRHOIDS [None]
  - HIATUS HERNIA [None]
  - HYPOTENSION [None]
  - LEUKOCYTOSIS [None]
  - MACROCYTOSIS [None]
  - MITRAL VALVE PROLAPSE [None]
  - PERICARDITIS [None]
  - POLYTRAUMATISM [None]
  - PUPILS UNEQUAL [None]
  - ROAD TRAFFIC ACCIDENT [None]
  - SUPRAVENTRICULAR TACHYCARDIA [None]
  - VENTRICULAR TACHYCARDIA [None]
